FAERS Safety Report 6176469-1 (Version None)
Quarter: 2009Q2

REPORT INFORMATION
  Report Type: 
  Country: None (occurrence: None)
  Receive Date: 20090501
  Receipt Date: 20090427
  Transmission Date: 20091009
  Serious: Yes (Other)
  Sender: FDA-Public Use
  Company Number: CA-AVENTIS-200914354GDDC

PATIENT
  Age: 57 Year
  Sex: Female
  Weight: 88.63 kg

DRUGS (10)
  1. LANTUS [Suspect]
     Route: 058
     Dates: start: 20060101, end: 20090101
  2. AUTOPEN INSULIN INJECTION PEN [Suspect]
  3. CRESTOR [Concomitant]
     Route: 048
  4. CIPRALEX [Concomitant]
     Indication: STRESS
     Route: 048
  5. ALISKIREN [Concomitant]
     Route: 048
  6. AVALIDE [Concomitant]
     Dosage: DOSE: 300/25
     Route: 048
  7. APO-BISOPROLOL [Concomitant]
     Route: 048
  8. LASIX [Concomitant]
     Indication: FLUID RETENTION
     Route: 048
  9. DESYREL [Concomitant]
     Indication: ANTIDEPRESSANT THERAPY
     Route: 048
  10. HUMALOG [Concomitant]
     Route: 058

REACTIONS (2)
  - SKIN INDURATION [None]
  - WEIGHT INCREASED [None]
